FAERS Safety Report 18691297 (Version 1)
Quarter: 2021Q1

REPORT INFORMATION
  Report Type: Report from Study
  Country: FR (occurrence: FR)
  Receive Date: 20210101
  Receipt Date: 20210101
  Transmission Date: 20210419
  Serious: Yes (Hospitalization, Other)
  Sender: FDA-Public Use
  Company Number: NVSC2020FR345803

PATIENT
  Age: 44 Year
  Sex: Female

DRUGS (2)
  1. BYL719 [Suspect]
     Active Substance: ALPELISIB
     Dosage: 250 MG, QD
     Route: 048
     Dates: start: 20201127, end: 20201221
  2. BYL719 [Suspect]
     Active Substance: ALPELISIB
     Indication: BREAST CANCER METASTATIC
     Dosage: 300 MG, QD
     Route: 048
     Dates: start: 20201102, end: 20201120

REACTIONS (7)
  - Hyperglycaemia [Unknown]
  - Hepatocellular injury [Recovering/Resolving]
  - Skin reaction [Unknown]
  - Vomiting [Unknown]
  - Ketoacidosis [Unknown]
  - Dehydration [Unknown]
  - Rash [Unknown]
